FAERS Safety Report 8496796-2 (Version None)
Quarter: 2012Q3

REPORT INFORMATION
  Report Type: 
  Country: None (occurrence: None)
  Receive Date: 20120709
  Receipt Date: 20120703
  Transmission Date: 20120928
  Serious: Yes (Hospitalization)
  Sender: FDA-Public Use
  Company Number: PHHO2012FR010082

PATIENT
  Sex: Male
  Weight: 51 kg

DRUGS (6)
  1. CYTARABINE [Suspect]
     Indication: ACUTE LYMPHOCYTIC LEUKAEMIA
     Dosage: 461.40 MG, UNK
     Route: 042
     Dates: start: 20120611, end: 20120615
  2. IMATINIB MESYLATE [Suspect]
     Indication: ACUTE LYMPHOCYTIC LEUKAEMIA
     Dosage: UNK
     Route: 048
     Dates: start: 20120611, end: 20120615
  3. CYCLOPHOSPHAMIDE [Suspect]
     Indication: ACUTE LYMPHOCYTIC LEUKAEMIA
     Dosage: 1538 MG, UNK
     Route: 042
     Dates: start: 20120611, end: 20120615
  4. METHOTREXATE [Suspect]
     Indication: ACUTE LYMPHOCYTIC LEUKAEMIA
     Dosage: 12 MG, UNK
     Dates: start: 20120611, end: 20120615
  5. CEFTAZIDIME [Concomitant]
  6. AMBISOME [Concomitant]

REACTIONS (2)
  - FEBRILE BONE MARROW APLASIA [None]
  - PANCREATITIS [None]
